FAERS Safety Report 11651560 (Version 1)
Quarter: 2015Q4

REPORT INFORMATION
  Report Type: Spontaneous
  Country: US (occurrence: None)
  Receive Date: 20151021
  Receipt Date: 20151021
  Transmission Date: 20160304
  Serious: No
  Sender: FDA-Public Use
  Company Number: None

PATIENT
  Age: 62 Year
  Sex: Female
  Weight: 90.72 kg

DRUGS (2)
  1. HYDROCHLOROTHIAZIDE. [Concomitant]
     Active Substance: HYDROCHLOROTHIAZIDE
  2. TRANSDERM SCOP [Suspect]
     Active Substance: SCOPOLAMINE
     Indication: PROPHYLAXIS AGAINST MOTION SICKNESS
     Dosage: 1 MG OVER 3 DAYS?1 EVERY 3 DAYS?APPLIED AS MEDICATED PATCH TO SKIN

REACTIONS (3)
  - Application site irritation [None]
  - Application site pruritus [None]
  - Impaired healing [None]

NARRATIVE: CASE EVENT DATE: 20150904
